FAERS Safety Report 6750280-2 (Version None)
Quarter: 2010Q2

REPORT INFORMATION
  Report Type: 
  Country: None (occurrence: None)
  Receive Date: 20100601
  Receipt Date: 20100524
  Transmission Date: 20101027
  Serious: Yes (Hospitalization, Other)
  Sender: FDA-Public Use
  Company Number: US-PFIZER INC-2010064697

PATIENT
  Sex: Male

DRUGS (3)
  1. XANAX [Suspect]
     Dosage: UNK
  2. OXYCONTIN [Suspect]
     Dosage: UNK
  3. ROXICODONE [Suspect]
     Dosage: UNK

REACTIONS (4)
  - DRUG SCREEN NEGATIVE [None]
  - INCORRECT DOSE ADMINISTERED [None]
  - PAIN [None]
  - STAPHYLOCOCCAL INFECTION [None]
